FAERS Safety Report 12729065 (Version 1)
Quarter: 2016Q3

REPORT INFORMATION
  Report Type: Spontaneous
  Country: ES (occurrence: ES)
  Receive Date: 20160909
  Receipt Date: 20160909
  Transmission Date: 20161109
  Serious: Yes (Hospitalization)
  Sender: FDA-Public Use
  Company Number: ES-JNJFOC-20160902155

PATIENT
  Age: 21 Year
  Sex: Male

DRUGS (6)
  1. PREZISTA [Suspect]
     Active Substance: DARUNAVIR ETHANOLATE
     Indication: ASYMPTOMATIC HIV INFECTION
     Route: 048
     Dates: start: 20140923, end: 20141003
  2. RITONAVIR. [Suspect]
     Active Substance: RITONAVIR
     Indication: ASYMPTOMATIC HIV INFECTION
     Route: 048
     Dates: start: 20140923, end: 20141003
  3. TRUVADA [Suspect]
     Active Substance: EMTRICITABINE\TENOFOVIR DISOPROXIL FUMARATE
     Indication: ASYMPTOMATIC HIV INFECTION
     Route: 048
     Dates: start: 20140923
  4. BENZYLPENICILLIN [Suspect]
     Active Substance: PENICILLIN G
     Indication: SYPHILIS
     Route: 065
     Dates: start: 201408
  5. SULFAMETHOXAZOLE AND TRIMETHOPRIM [Suspect]
     Active Substance: SULFAMETHOXAZOLE\TRIMETHOPRIM
     Indication: PROPHYLAXIS
     Route: 048
     Dates: start: 20140923, end: 20141002
  6. OMEPRAZOLE. [Suspect]
     Active Substance: OMEPRAZOLE
     Indication: GASTRITIS PROPHYLAXIS
     Route: 048
     Dates: start: 20140930, end: 20141001

REACTIONS (2)
  - Jarisch-Herxheimer reaction [Unknown]
  - Rash [Recovered/Resolved]

NARRATIVE: CASE EVENT DATE: 20140930
